FAERS Safety Report 10007271 (Version 2)
Quarter: 2014Q2

REPORT INFORMATION
  Report Type: Report from Study
  Country: JP (occurrence: JP)
  Receive Date: 20140313
  Receipt Date: 20140425
  Transmission Date: 20141212
  Serious: Yes (Death)
  Sender: FDA-Public Use
  Company Number: JP-AMGEN-JPNCT2014017983

PATIENT
  Age: 87 Year
  Sex: Male
  Weight: 46 kg

DRUGS (9)
  1. DARBEPOETIN ALFA [Suspect]
     Indication: NEPHROGENIC ANAEMIA
     Dosage: 60 MUG, QD
     Route: 058
     Dates: start: 20110120, end: 20131216
  2. BASEN                              /01290601/ [Concomitant]
     Dosage: UNK
     Route: 048
  3. TAKEPRON [Concomitant]
     Dosage: UNK
     Route: 048
  4. MARZULENE-S [Concomitant]
     Dosage: UNK
     Route: 048
  5. URSO                               /00465701/ [Concomitant]
     Dosage: UNK
     Route: 048
  6. COSPANON [Concomitant]
     Dosage: UNK
     Route: 048
  7. FERO-GRADUMET [Concomitant]
     Indication: DIABETIC NEPHROPATHY
     Dosage: UNK
     Route: 048
  8. KREMEZIN [Concomitant]
     Indication: DIABETIC NEPHROPATHY
     Dosage: UNK
     Route: 048
  9. ZYLORIC [Concomitant]
     Dosage: UNK
     Route: 048

REACTIONS (1)
  - Pathological fracture [Fatal]
